FAERS Safety Report 18974302 (Version 2)
Quarter: 2021Q2

REPORT INFORMATION
  Report Type: Report from Study
  Country: US (occurrence: US)
  Receive Date: 20210305
  Receipt Date: 20210421
  Transmission Date: 20210717
  Serious: Yes (Hospitalization, Other)
  Sender: FDA-Public Use
  Company Number: NVSC2021US044872

PATIENT
  Sex: Female

DRUGS (1)
  1. GILENYA [Suspect]
     Active Substance: FINGOLIMOD HYDROCHLORIDE
     Indication: MULTIPLE SCLEROSIS
     Dosage: 0.5 MG, QD
     Route: 048
     Dates: start: 201409

REACTIONS (9)
  - Fall [Recovered/Resolved with Sequelae]
  - Urinary tract infection [Unknown]
  - Multiple sclerosis relapse [Unknown]
  - Hip fracture [Recovered/Resolved with Sequelae]
  - Hemiparesis [Unknown]
  - Gait disturbance [Unknown]
  - Sepsis [Unknown]
  - Peroneal nerve palsy [Recovered/Resolved]
  - Product dose omission issue [Unknown]

NARRATIVE: CASE EVENT DATE: 2017
